FAERS Safety Report 8044214-0 (Version None)
Quarter: 2011Q4

REPORT INFORMATION
  Report Type: 
  Country: None (occurrence: None)
  Receive Date: 20111202
  Receipt Date: 20101026
  Transmission Date: 20120403
  Serious: Yes (Disabling)
  Sender: FDA-Public Use
  Company Number: WAES 1007USA01974

PATIENT
  Age: 76 Year
  Sex: Female
  Weight: 44.9061 kg

DRUGS (2)
  1. FOSAMAX [Suspect]
     Indication: PROPHYLAXIS
     Dosage: 70 MG PO
     Route: 048
     Dates: start: 20080627, end: 20090415
  2. FOSAMAX [Suspect]
     Indication: OSTEOPOROSIS
     Dosage: 70 MG/WKY/PO
     Route: 048
     Dates: start: 20020604, end: 20080627

REACTIONS (46)
  - ABDOMINAL PAIN [None]
  - CALCINOSIS [None]
  - RHINORRHOEA [None]
  - HAEMORRHOID INFECTION [None]
  - GASTRITIS ATROPHIC [None]
  - CHEST PAIN [None]
  - CONSTIPATION [None]
  - CARDIAC MURMUR [None]
  - RECTAL HAEMORRHAGE [None]
  - FALL [None]
  - NERVOUSNESS [None]
  - DIABETES MELLITUS INADEQUATE CONTROL [None]
  - PHLEBOLITH [None]
  - GINGIVAL DISORDER [None]
  - DYSPEPSIA [None]
  - HYPOGLYCAEMIA [None]
  - PHARYNGITIS [None]
  - ANXIETY [None]
  - BACTERIAL INFECTION [None]
  - CATARACT [None]
  - DIVERTICULUM [None]
  - DRUG HYPERSENSITIVITY [None]
  - PANCREATIC CYST [None]
  - DERMAL CYST [None]
  - IMPAIRED HEALING [None]
  - OSTEONECROSIS OF JAW [None]
  - BUNDLE BRANCH BLOCK RIGHT [None]
  - CONTUSION [None]
  - GASTRITIS [None]
  - RHINITIS ALLERGIC [None]
  - DIARRHOEA [None]
  - EYE IRRITATION [None]
  - GASTRIC MUCOSA ERYTHEMA [None]
  - BRUXISM [None]
  - HERPES ZOSTER [None]
  - PLANTAR FASCIITIS [None]
  - INCREASED TENDENCY TO BRUISE [None]
  - EYELID DISORDER [None]
  - SALIVARY GLAND MASS [None]
  - DIZZINESS [None]
  - GASTRIC POLYPS [None]
  - GASTROINTESTINAL DISORDER [None]
  - TOOTH DISORDER [None]
  - RESTLESS LEGS SYNDROME [None]
  - ANAEMIA [None]
  - OEDEMA PERIPHERAL [None]
